FAERS Safety Report 16971236 (Version 1)
Quarter: 2019Q4

REPORT INFORMATION
  Report Type: Spontaneous
  Country: US (occurrence: US)
  Receive Date: 20191029
  Receipt Date: 20191029
  Transmission Date: 20200122
  Serious: Yes (Other)
  Sender: FDA-Public Use
  Company Number: US-ASTRAZENECA-2018SF65422

PATIENT
  Age: 25762 Day
  Sex: Female
  Weight: 88 kg

DRUGS (41)
  1. DEXILANT [Suspect]
     Active Substance: DEXLANSOPRAZOLE
     Route: 065
     Dates: start: 2014, end: 2016
  2. FENOFIBRATE. [Concomitant]
     Active Substance: FENOFIBRATE
  3. SIMVASTATIN. [Concomitant]
     Active Substance: SIMVASTATIN
  4. SIMVASTATIN. [Concomitant]
     Active Substance: SIMVASTATIN
  5. RAMIPRIL. [Concomitant]
     Active Substance: RAMIPRIL
  6. SYNTHROID [Concomitant]
     Active Substance: LEVOTHYROXINE SODIUM
  7. CYCLOBENZAPRINE. [Concomitant]
     Active Substance: CYCLOBENZAPRINE
  8. PEPTO-BISMOL [Concomitant]
     Active Substance: BISMUTH SUBSALICYLATE
  9. COLACE [Concomitant]
     Active Substance: DOCUSATE SODIUM
  10. PRILOSEC [Suspect]
     Active Substance: OMEPRAZOLE MAGNESIUM
     Indication: VOMITING
     Route: 048
     Dates: start: 2008
  11. HYDROCODONE BITARTRATE AND ACETAMINOPHEN [Concomitant]
     Active Substance: ACETAMINOPHEN\HYDROCODONE BITARTRATE
  12. SIMVASTATIN. [Concomitant]
     Active Substance: SIMVASTATIN
  13. RANITIDINE. [Concomitant]
     Active Substance: RANITIDINE
  14. PRILOSEC [Suspect]
     Active Substance: OMEPRAZOLE MAGNESIUM
     Indication: DYSPEPSIA
     Route: 048
     Dates: start: 2008
  15. PRILOSEC [Suspect]
     Active Substance: OMEPRAZOLE MAGNESIUM
     Indication: DYSPHAGIA
     Route: 048
     Dates: start: 2008
  16. SIMVASTATIN. [Concomitant]
     Active Substance: SIMVASTATIN
  17. RABEPRAZOLE [Concomitant]
     Active Substance: RABEPRAZOLE
  18. FENOFIBRATE. [Concomitant]
     Active Substance: FENOFIBRATE
  19. CLONIDINE. [Concomitant]
     Active Substance: CLONIDINE
  20. ACIPHEX [Suspect]
     Active Substance: RABEPRAZOLE SODIUM
     Route: 065
  21. FENOFIBRATE. [Concomitant]
     Active Substance: FENOFIBRATE
  22. TYLENOL [Concomitant]
     Active Substance: ACETAMINOPHEN
  23. METOPROLOL. [Concomitant]
     Active Substance: METOPROLOL
  24. POTASSIUM CHLORIDE. [Concomitant]
     Active Substance: POTASSIUM CHLORIDE
  25. DEXILANT [Suspect]
     Active Substance: DEXLANSOPRAZOLE
     Route: 065
  26. TRAMADOL. [Concomitant]
     Active Substance: TRAMADOL
  27. LIDOCAINE. [Concomitant]
     Active Substance: LIDOCAINE
  28. TRIAMCINOLONE [Concomitant]
     Active Substance: TRIAMCINOLONE
  29. SPIRONOLACTONE. [Concomitant]
     Active Substance: SPIRONOLACTONE
  30. LEVOTHYROXINE. [Concomitant]
     Active Substance: LEVOTHYROXINE
  31. EPIPEN [Concomitant]
     Active Substance: EPINEPHRINE
  32. METAXALONE. [Concomitant]
     Active Substance: METAXALONE
  33. DEXILANT [Suspect]
     Active Substance: DEXLANSOPRAZOLE
     Route: 065
  34. PANTOPRAZOLE [Suspect]
     Active Substance: PANTOPRAZOLE
     Indication: DYSPEPSIA
     Route: 065
     Dates: start: 2009
  35. SIMVASTATIN. [Concomitant]
     Active Substance: SIMVASTATIN
  36. TRIAMCINOLONE [Concomitant]
     Active Substance: TRIAMCINOLONE
  37. SIMVASTATIN. [Concomitant]
     Active Substance: SIMVASTATIN
  38. TORSEMIDE. [Concomitant]
     Active Substance: TORSEMIDE
  39. XARELTO [Concomitant]
     Active Substance: RIVAROXABAN
  40. CARVEDILOL. [Concomitant]
     Active Substance: CARVEDILOL
  41. ALPRAZOLAM. [Concomitant]
     Active Substance: ALPRAZOLAM

REACTIONS (4)
  - Rebound acid hypersecretion [Unknown]
  - Chronic kidney disease [Not Recovered/Not Resolved]
  - Renal injury [Unknown]
  - Renal failure [Unknown]

NARRATIVE: CASE EVENT DATE: 20170927
